FAERS Safety Report 8926403 (Version 1)
Quarter: 2012Q4

REPORT INFORMATION
  Report Type: 
  Country: DK (occurrence: DK)
  Receive Date: 20121127
  Receipt Date: 20121127
  Transmission Date: 20130627
  Serious: Yes (Disabling)
  Sender: FDA-Public Use
  Company Number: DK-GLAXOSMITHKLINE-B0847834A

PATIENT
  Age: 46 Year
  Sex: Male
  Weight: 90 kg

DRUGS (1)
  1. SERETIDE [Suspect]
     Indication: LUNG DISORDER
     Route: 055
     Dates: start: 20110501, end: 20120831

REACTIONS (2)
  - Retinal detachment [Recovered/Resolved]
  - Retinopathy [Recovered/Resolved]
